FAERS Safety Report 11689315 (Version 2)
Quarter: 2015Q4

REPORT INFORMATION
  Report Type: Spontaneous
  Country: PH (occurrence: PH)
  Receive Date: 20151102
  Receipt Date: 20151106
  Transmission Date: 20160304
  Serious: Yes (Hospitalization, Other)
  Sender: FDA-Public Use
  Company Number: PH-009507513-1510PHL014885

PATIENT
  Age: 65 Year
  Sex: Male

DRUGS (1)
  1. JANUMET [Suspect]
     Active Substance: METFORMIN HYDROCHLORIDE\SITAGLIPTIN PHOSPHATE
     Indication: DIABETES MELLITUS
     Dosage: 1 TABLET, TWICE A DAY
     Route: 048

REACTIONS (2)
  - Cholelithiasis [Recovered/Resolved]
  - Diarrhoea [Recovered/Resolved]

NARRATIVE: CASE EVENT DATE: 201509
